FAERS Safety Report 17850665 (Version 1)
Quarter: 2020Q2

REPORT INFORMATION
  Report Type: Spontaneous
  Country: US (occurrence: US)
  Receive Date: 20200602
  Receipt Date: 20200602
  Transmission Date: 20200714
  Serious: Yes (Life-Threatening, Other)
  Sender: FDA-Public Use
  Company Number: None

PATIENT
  Age: 33 Year
  Sex: Male
  Weight: 96.75 kg

DRUGS (4)
  1. XYZAL [Concomitant]
     Active Substance: LEVOCETIRIZINE DIHYDROCHLORIDE
  2. MULTIVITAMIN [Concomitant]
     Active Substance: VITAMINS
  3. FLONASE [Concomitant]
     Active Substance: FLUTICASONE PROPIONATE
  4. MONTELUKAST [Suspect]
     Active Substance: MONTELUKAST SODIUM
     Indication: MULTIPLE ALLERGIES
     Route: 048
     Dates: start: 20180301, end: 20200505

REACTIONS (7)
  - Anxiety [None]
  - Memory impairment [None]
  - Dizziness [None]
  - Disturbance in attention [None]
  - Headache [None]
  - Suicidal ideation [None]
  - Panic attack [None]

NARRATIVE: CASE EVENT DATE: 20200505
